FAERS Safety Report 9005810 (Version 1)
Quarter: 2013Q1

REPORT INFORMATION
  Report Type: Report from Study
  Country: US (occurrence: US)
  Receive Date: 20130109
  Receipt Date: 20130109
  Transmission Date: 20140127
  Serious: No
  Sender: FDA-Public Use
  Company Number: US-ABBOTT-12P-163-0960267-00

PATIENT
  Sex: Female
  Weight: 80.81 kg

DRUGS (1)
  1. VICODIN [Suspect]
     Indication: ARTHRITIS
     Dosage: 5/500
     Dates: start: 1997

REACTIONS (6)
  - Colitis ulcerative [Unknown]
  - Diverticulum [Unknown]
  - Crohn^s disease [Unknown]
  - Hypertension [Recovered/Resolved]
  - Weight decreased [Unknown]
  - Neuropathy peripheral [Unknown]
